FAERS Safety Report 13256450 (Version 1)
Quarter: 2017Q1

REPORT INFORMATION
  Report Type: Report from Study
  Country: BR (occurrence: BR)
  Receive Date: 20170221
  Receipt Date: 20170221
  Transmission Date: 20170428
  Serious: Yes (Other)
  Sender: FDA-Public Use
  Company Number: BR-JNJFOC-20170216016

PATIENT
  Sex: Male
  Weight: 62 kg

DRUGS (4)
  1. REMICADE [Suspect]
     Active Substance: INFLIXIMAB
     Indication: CROHN^S DISEASE
     Route: 042
  2. AZATHIOPRINE. [Concomitant]
     Active Substance: AZATHIOPRINE
     Dosage: 2 TABLETS ORALLY PER DAY
     Route: 048
  3. REMICADE [Suspect]
     Active Substance: INFLIXIMAB
     Indication: CROHN^S DISEASE
     Route: 042
     Dates: start: 2015
  4. MESALAZINE [Concomitant]
     Active Substance: MESALAMINE
     Dosage: 2 TABLETS IN THE MORNING , 1 IN THE AFTERNOON AND 1 AT NIGHT.
     Route: 048

REACTIONS (4)
  - Colonoscopy [Unknown]
  - Off label use [Unknown]
  - Drug prescribing error [Unknown]
  - Product use issue [Unknown]
